FAERS Safety Report 20060008 (Version 1)
Quarter: 2021Q4

REPORT INFORMATION
  Report Type: Spontaneous
  Country: US (occurrence: US)
  Receive Date: 20211111
  Receipt Date: 20211111
  Transmission Date: 20220303
  Serious: No
  Sender: FDA-Public Use
  Company Number: US-G1-000362

PATIENT
  Sex: Female

DRUGS (1)
  1. COSELA [Suspect]
     Active Substance: TRILACICLIB DIHYDROCHLORIDE
     Indication: Product used for unknown indication
     Dates: start: 20211012, end: 20211013

REACTIONS (1)
  - Headache [Unknown]

NARRATIVE: CASE EVENT DATE: 20211013
